FAERS Safety Report 4707979-9 (Version None)
Quarter: 2005Q2

REPORT INFORMATION
  Report Type: 
  Country: None (occurrence: None)
  Receive Date: 20050629
  Receipt Date: 20050502
  Transmission Date: 20051028
  Serious: No
  Sender: FDA-Public Use
  Company Number: 05P-163-0299017-00

PATIENT
  Age: 55 Year
  Sex: Female
  Weight: 72.5755 kg

DRUGS (14)
  1. HUMIRA [Suspect]
     Indication: RHEUMATOID ARTHRITIS
     Dosage: 40 MG, 1 IN 2 WK, SUBCUTANEOUS
     Route: 058
     Dates: start: 20050409
  2. METHOTREXATE SODIUM [Concomitant]
  3. DICLOFENAC SODIUM [Concomitant]
  4. ZETIA [Concomitant]
  5. QUININE SULFATE [Concomitant]
  6. DOCUSATE SODIUM [Concomitant]
  7. NATURAL ESTOGEN [Concomitant]
  8. AMILORIDE HCL [Concomitant]
  9. LEVOTHYROXINE [Concomitant]
  10. PREDNISONE TAB [Concomitant]
  11. FOLIC ACID [Concomitant]
  12. MECLIZINE [Concomitant]
  13. ASCORBIC ACID [Concomitant]
  14. TOCOPHEROL CONCENTRATE CAP [Concomitant]

REACTIONS (1)
  - INJECTION SITE IRRITATION [None]
